FAERS Safety Report 5613454-X (Version None)
Quarter: 2008Q1

REPORT INFORMATION
  Report Type: 
  Country: None (occurrence: None)
  Receive Date: 20080129
  Receipt Date: 20080110
  Transmission Date: 20080703
  Serious: Yes (Hospitalization)
  Sender: FDA-Public Use
  Company Number: 1-15686451/MED-08011

PATIENT
  Sex: Female

DRUGS (2)
  1. ZONISAMIDE [Suspect]
     Indication: CONVULSION
     Dosage: 200 MG DAILY, ORAL
     Route: 048
     Dates: start: 19991027, end: 20000310
  2. CORTICOSTEROIDS [Concomitant]

REACTIONS (10)
  - ACUTE GRAFT VERSUS HOST DISEASE IN SKIN [None]
  - ALOPECIA [None]
  - AUTOIMMUNE DISORDER [None]
  - DRUG RASH WITH EOSINOPHILIA AND SYSTEMIC SYMPTOMS [None]
  - HUMAN HERPES VIRUS 6 SEROLOGY POSITIVE [None]
  - PANCYTOPENIA [None]
  - RAYNAUD'S PHENOMENON [None]
  - SCLERODERMA [None]
  - THYROID DISORDER [None]
  - VARICELLA [None]
